FAERS Safety Report 7362659-9 (Version None)
Quarter: 2011Q1

REPORT INFORMATION
  Report Type: 
  Country: None (occurrence: None)
  Receive Date: 20110321
  Receipt Date: 20110316
  Transmission Date: 20110831
  Serious: Yes (Hospitalization, Other)
  Sender: FDA-Public Use
  Company Number: FR-BIOGENIDEC-2011BI000789

PATIENT
  Age: 58 Year
  Sex: Male
  Weight: 95 kg

DRUGS (5)
  1. INEGY [Concomitant]
     Route: 048
  2. KARDEGIC [Concomitant]
     Indication: CARDIOVASCULAR DISORDER
     Dates: start: 19950101
  3. LISINOPRIL [Concomitant]
     Indication: CARDIOVASCULAR DISORDER
     Dates: start: 20010101
  4. CELIPROLOL [Concomitant]
     Indication: CARDIOVASCULAR DISORDER
     Dates: start: 20010101
  5. TYSABRI [Suspect]
     Indication: MULTIPLE SCLEROSIS
     Route: 042
     Dates: start: 20100204, end: 20110106

REACTIONS (2)
  - CHRONIC MYELOID LEUKAEMIA [None]
  - PANCREATITIS ACUTE [None]
